FAERS Safety Report 8408098-0 (Version None)
Quarter: 2012Q2

REPORT INFORMATION
  Report Type: 
  Country: None (occurrence: None)
  Receive Date: 20120529
  Receipt Date: 20060606
  Transmission Date: 20120825
  Serious: Yes (Hospitalization, Other)
  Sender: FDA-Public Use
  Company Number: 02100-JPN-06-0163

PATIENT
  Age: 73 Year
  Sex: Female
  Weight: 65 kg

DRUGS (7)
  1. FOLIC ACID [Concomitant]
  2. PLETAL [Suspect]
     Indication: MYOCARDIAL INFARCTION
     Dosage: 100 MG, BID, ORAL
     Route: 048
     Dates: start: 20060318, end: 20060323
  3. PLETAL [Suspect]
     Indication: CATHETERISATION CARDIAC
     Dosage: 100 MG, BID, ORAL
     Route: 048
     Dates: start: 20060318, end: 20060323
  4. ALBUMIN TANNATE (ALBUMIN TANNATE) POWDER (EXCEPT [DPO]) [Concomitant]
  5. PHENOBAL (PHENOBARBITAL) POWDER (EXCEPT [DPO]) [Concomitant]
  6. SIGMART (NICORANDIL) [Concomitant]
  7. HEPARIN [Concomitant]

REACTIONS (5)
  - DISEASE PROGRESSION [None]
  - PRURITUS [None]
  - GENERALISED ERYTHEMA [None]
  - CORONARY ARTERY DISEASE [None]
  - CONDITION AGGRAVATED [None]
